FAERS Safety Report 7034657-6 (Version None)
Quarter: 2010Q4

REPORT INFORMATION
  Report Type: 
  Country: None (occurrence: None)
  Receive Date: 20101008
  Receipt Date: 20100930
  Transmission Date: 20110411
  Serious: Yes (Other)
  Sender: FDA-Public Use
  Company Number: IL-ASTRAZENECA-2010SE46036

PATIENT
  Age: 37 Year
  Sex: Female

DRUGS (6)
  1. BUDESONIDE [Suspect]
     Indication: ASTHMA
     Dosage: 160/4.5 UG TWICE DAILY
     Route: 055
  2. LOPINAVIR/RITONAVIR [Interacting]
     Indication: HIV INFECTION
     Dosage: 800/200 MG TWICE DAILY
     Dates: start: 20070101
  3. RITONAVIR [Interacting]
     Indication: HIV INFECTION
  4. TENOFOVIR [Concomitant]
     Indication: HIV INFECTION
     Dates: start: 20071201
  5. FOSAMPRENAVIR [Concomitant]
     Indication: HIV INFECTION
  6. EMTRICITABINE [Concomitant]
     Indication: HIV INFECTION
     Dates: start: 20070101

REACTIONS (2)
  - CUSHING'S SYNDROME [None]
  - DRUG INTERACTION [None]
